FAERS Safety Report 4809249-7 (Version None)
Quarter: 2005Q4

REPORT INFORMATION
  Report Type: 
  Country: None (occurrence: None)
  Receive Date: 20051021
  Receipt Date: 20030708
  Transmission Date: 20060501
  Serious: Yes (Hospitalization)
  Sender: FDA-Public Use
  Company Number: GBS030713389

PATIENT
  Age: 79 Year
  Sex: Female

DRUGS (4)
  1. OLANZAPINE [Suspect]
     Dosage: 10 MG
     Dates: end: 20030303
  2. GLIBENCLAMIDE [Concomitant]
  3. ASPIRIN [Concomitant]
  4. CITALOPRAM [Concomitant]

REACTIONS (1)
  - THROMBOCYTOPENIA [None]
